FAERS Safety Report 24605228 (Version 1)
Quarter: 2024Q4

REPORT INFORMATION
  Report Type: Spontaneous
  Country: DE (occurrence: DE)
  Receive Date: 20241111
  Receipt Date: 20241111
  Transmission Date: 20250115
  Serious: Yes (Disabling, Other)
  Sender: ELI LILLY AND COMPANY
  Company Number: DE-DCGMA-24204150

PATIENT
  Age: 72 Year
  Sex: Female

DRUGS (1)
  1. ABEMACICLIB [Suspect]
     Active Substance: ABEMACICLIB
     Indication: Invasive breast carcinoma
     Dosage: 150 MG, BID
     Route: 065
     Dates: start: 202205, end: 202406

REACTIONS (3)
  - Chronic cutaneous lupus erythematosus [Unknown]
  - Raynaud^s phenomenon [Unknown]
  - Vitiligo [Unknown]

NARRATIVE: CASE EVENT DATE: 20230701
